FAERS Safety Report 8171415-3 (Version None)
Quarter: 2012Q1

REPORT INFORMATION
  Report Type: 
  Country: None (occurrence: None)
  Receive Date: 20120104
  Receipt Date: 20111202
  Transmission Date: 20120608
  Serious: No
  Sender: FDA-Public Use
  Company Number: 2011HGS-002904

PATIENT
  Age: 55 Year
  Sex: Female
  Weight: 111.5849 kg

DRUGS (5)
  1. FOSAMAX [Concomitant]
  2. CALCIUM WITH VITAMIN D(ERGOCALCIFEROL, CALCIUM PHOSPHATE, CALCIUM SODI [Concomitant]
  3. MULTIVITAMIN(MULTIVITAMINS)(ERGOCALCIFEROL, ASCORBIC ACID, FOLIC ACID, [Concomitant]
  4. BENLYSTA [Suspect]
     Indication: SYSTEMIC LUPUS ERYTHEMATOSUS
     Dosage: 1 IN 28 D, INTRAVENOUS DRIP
     Route: 041
     Dates: start: 20110929
  5. PRILOSEC (OMEPRAZOLE) (OMEPRAZOLE) [Concomitant]

REACTIONS (4)
  - BRONCHITIS [None]
  - HYPOAESTHESIA [None]
  - PAIN IN EXTREMITY [None]
  - SINUSITIS [None]
